FAERS Safety Report 9893075 (Version 1)
Quarter: 2014Q1

REPORT INFORMATION
  Report Type: Spontaneous
  Country: CL (occurrence: CL)
  Receive Date: 20140213
  Receipt Date: 20140213
  Transmission Date: 20141002
  Serious: Yes (Hospitalization, Other)
  Sender: FDA-Public Use
  Company Number: CL-RANBAXY-2014RR-77957

PATIENT
  Age: 72 Year
  Sex: Female

DRUGS (1)
  1. METFORMIN [Suspect]
     Indication: DIABETES MELLITUS
     Dosage: UNK
     Route: 065

REACTIONS (4)
  - Lactic acidosis [Recovering/Resolving]
  - Multi-organ failure [Recovering/Resolving]
  - Gastric ulcer [Unknown]
  - Upper gastrointestinal haemorrhage [Unknown]
